FAERS Safety Report 5117293-8 (Version None)
Quarter: 2006Q3

REPORT INFORMATION
  Report Type: 
  Country: None (occurrence: None)
  Receive Date: 20060926
  Receipt Date: 20060918
  Transmission Date: 20061208
  Serious: Yes (Hospitalization)
  Sender: FDA-Public Use
  Company Number: S06-USA-03733-01

PATIENT
  Age: 92 Year
  Sex: Female

DRUGS (8)
  1. NAMENDA [Suspect]
     Indication: DEMENTIA ALZHEIMER'S TYPE
     Dosage: 10 MG BID; PO
     Route: 048
     Dates: start: 20040101, end: 20060501
  2. NAMENDA [Suspect]
     Indication: DEMENTIA ALZHEIMER'S TYPE
     Dosage: 10 MG BID; PO
     Route: 048
     Dates: start: 20060501, end: 20060801
  3. NAMENDA [Suspect]
     Indication: DEMENTIA ALZHEIMER'S TYPE
     Dosage: 5 MG QD, PO
     Route: 048
     Dates: start: 20060801, end: 20060801
  4. NAMENDA [Suspect]
     Indication: DEMENTIA ALZHEIMER'S TYPE
     Dosage: 10 MG BID; PO
     Route: 048
     Dates: start: 20060801
  5. FLORINEF [Suspect]
     Dosage: 0.1 MG, BID
     Dates: start: 20050101
  6. GALANTAMINE HYDROBROMIDE [Concomitant]
  7. LIPITOR [Concomitant]
  8. BACTRIM (TRIMETHOPRIM AND SULFAMETHOXAZOLE) [Concomitant]

REACTIONS (6)
  - BLOOD POTASSIUM DECREASED [None]
  - DEHYDRATION [None]
  - FATIGUE [None]
  - GASTRIC ULCER [None]
  - HELICOBACTER INFECTION [None]
  - SOMNOLENCE [None]
